FAERS Safety Report 16313106 (Version 6)
Quarter: 2021Q2

REPORT INFORMATION
  Report Type: Other
  Country: CA (occurrence: CA)
  Receive Date: 20190515
  Receipt Date: 20210623
  Transmission Date: 20210716
  Serious: Yes (Other)
  Sender: FDA-Public Use
  Company Number: CA-ROCHE-2319135

PATIENT
  Sex: Female

DRUGS (10)
  1. OCREVUS [Suspect]
     Active Substance: OCRELIZUMAB
     Indication: PRIMARY PROGRESSIVE MULTIPLE SCLEROSIS
     Dosage: 300 MG AT DAY 0 AND 14, THEN 600 MG EVERY 6 MONTH
     Route: 042
     Dates: start: 20181220
  2. BACLOFEN. [Concomitant]
     Active Substance: BACLOFEN
  3. GABAPENTIN. [Concomitant]
     Active Substance: GABAPENTIN
     Indication: NEURALGIA
     Dosage: ONGOING YES
  4. SOLIFENACIN [Concomitant]
     Active Substance: SOLIFENACIN
  5. WARFARIN [Concomitant]
     Active Substance: WARFARIN
     Indication: THROMBOSIS
     Dosage: ONGOING YES
  6. RABEPRAZOLE [Concomitant]
     Active Substance: RABEPRAZOLE
  7. METFORMIN [Concomitant]
     Active Substance: METFORMIN HYDROCHLORIDE
     Indication: DIABETES MELLITUS
     Dosage: ONGOING YES
  8. COVID?19 VACCINE [Concomitant]
     Dosage: MAY 19
  9. FAMPYRA [Concomitant]
     Active Substance: DALFAMPRIDINE
  10. BACLOFEN. [Concomitant]
     Active Substance: BACLOFEN
     Indication: PAIN MANAGEMENT
     Dosage: ONGOING YES

REACTIONS (5)
  - Lower respiratory tract infection [Recovered/Resolved]
  - Infusion related reaction [Not Recovered/Not Resolved]
  - Oral herpes [Recovered/Resolved]
  - Psoriasis [Unknown]
  - Rash [Not Recovered/Not Resolved]

NARRATIVE: CASE EVENT DATE: 2019
